FAERS Safety Report 7049485-5 (Version None)
Quarter: 2010Q4

REPORT INFORMATION
  Report Type: 
  Country: None (occurrence: None)
  Receive Date: 20101018
  Receipt Date: 20101012
  Transmission Date: 20110411
  Serious: Yes (Other)
  Sender: FDA-Public Use
  Company Number: US-PFIZER INC-2010130174

PATIENT
  Sex: Female

DRUGS (1)
  1. ANTIVERT [Suspect]
     Dosage: 12.5 MG, UNK

REACTIONS (1)
  - CARDIAC DISORDER [None]
